FAERS Safety Report 9306210 (Version 2)
Quarter: 2013Q2

REPORT INFORMATION
  Report Type: Spontaneous
  Country: FR (occurrence: FR)
  Receive Date: 20130523
  Receipt Date: 20130603
  Transmission Date: 20140414
  Serious: Yes (Life-Threatening, Hospitalization)
  Sender: FDA-Public Use
  Company Number: FR-GLAXOSMITHKLINE-B0892451A

PATIENT
  Age: 35 Year
  Sex: Female

DRUGS (1)
  1. REVOLADE [Suspect]
     Indication: IDIOPATHIC THROMBOCYTOPENIC PURPURA
     Dosage: 50MG PER DAY
     Route: 048
     Dates: start: 20120307

REACTIONS (4)
  - Platelet count decreased [Recovering/Resolving]
  - Platelet count abnormal [Unknown]
  - Petechiae [Recovering/Resolving]
  - Treatment failure [Unknown]
